FAERS Safety Report 13093518 (Version 2)
Quarter: 2017Q1

REPORT INFORMATION
  Report Type: Spontaneous
  Country: US (occurrence: US)
  Receive Date: 20170106
  Receipt Date: 20170124
  Transmission Date: 20170428
  Serious: Yes (Other)
  Sender: FDA-Public Use
  Company Number: US-BAUSCH-BL-2016-031900

PATIENT
  Age: 60 Year
  Sex: Female

DRUGS (2)
  1. SOOTHE HYDRATION [Suspect]
     Active Substance: POVIDONE
     Indication: EYE IRRITATION
  2. SOOTHE HYDRATION [Suspect]
     Active Substance: POVIDONE
     Indication: DRY EYE
     Dosage: INTO BOTH EYES
     Route: 047
     Dates: start: 201611, end: 2016

REACTIONS (2)
  - Blindness [Recovered/Resolved]
  - Vision blurred [Recovered/Resolved]

NARRATIVE: CASE EVENT DATE: 2016
